FAERS Safety Report 14605353 (Version 1)
Quarter: 2018Q1

REPORT INFORMATION
  Report Type: Spontaneous
  Country: US (occurrence: US)
  Receive Date: 20180306
  Receipt Date: 20180306
  Transmission Date: 20180509
  Serious: Yes (Hospitalization)
  Sender: FDA-Public Use
  Company Number: US-ACTELION-A-NJ2018-167259

PATIENT
  Age: 24 Year
  Sex: Female
  Weight: 90.7 kg

DRUGS (3)
  1. PROSTACYCLIN [Concomitant]
     Active Substance: EPOPROSTENOL
     Dosage: UNK
     Route: 048
     Dates: start: 201712
  2. UPTRAVI [Suspect]
     Active Substance: SELEXIPAG
     Dosage: 1000 MCG, BID
     Route: 048
  3. UPTRAVI [Suspect]
     Active Substance: SELEXIPAG
     Indication: PULMONARY ARTERIAL HYPERTENSION
     Dosage: 800MCG IN QAM AND 1000MCG IN QPM
     Route: 048
     Dates: end: 201802

REACTIONS (4)
  - Dyspnoea [Unknown]
  - Headache [Unknown]
  - Pulmonary hypertension [Unknown]
  - Nausea [Unknown]
